FAERS Safety Report 11637165 (Version 1)
Quarter: 2015Q4

REPORT INFORMATION
  Report Type: Spontaneous
  Country: FR (occurrence: FR)
  Receive Date: 20151016
  Receipt Date: 20151016
  Transmission Date: 20160304
  Serious: Yes (Other)
  Sender: FDA-Public Use
  Company Number: FR-SA-2015SA158307

PATIENT
  Age: 46 Year
  Sex: Female

DRUGS (1)
  1. LOVENOX [Suspect]
     Active Substance: ENOXAPARIN SODIUM
     Route: 065
     Dates: start: 20151004

REACTIONS (2)
  - Fatigue [Unknown]
  - Epilepsy [Unknown]

NARRATIVE: CASE EVENT DATE: 20151006
